FAERS Safety Report 9376979 (Version 1)
Quarter: 2013Q3

REPORT INFORMATION
  Report Type: Spontaneous
  Country: DK (occurrence: JP)
  Receive Date: 20130701
  Receipt Date: 20130701
  Transmission Date: 20140515
  Serious: Yes (Hospitalization)
  Sender: FDA-Public Use
  Company Number: JP-FRI-1000046317

PATIENT
  Age: 39 Year
  Sex: Male

DRUGS (3)
  1. LEXAPRO [Suspect]
     Dosage: OVERDOSE 350 MG
     Route: 048
  2. SOLANAX [Suspect]
     Dosage: OVERDOSE 210 MG
     Route: 048
  3. DOGMATYL [Suspect]
     Dosage: OVERDOSE 190 MG
     Route: 048

REACTIONS (3)
  - Depressed level of consciousness [Unknown]
  - Mouth breathing [Unknown]
  - Overdose [Unknown]
